FAERS Safety Report 16633447 (Version 1)
Quarter: 2019Q3

REPORT INFORMATION
  Report Type: Spontaneous
  Country: AU (occurrence: AU)
  Receive Date: 20190725
  Receipt Date: 20190725
  Transmission Date: 20191004
  Serious: Yes (Other)
  Sender: FDA-Public Use
  Company Number: AU-NOVOPROD-674230

PATIENT
  Sex: Female
  Weight: 74 kg

DRUGS (6)
  1. METFORMIN AN [Concomitant]
     Dosage: 500 MG, QD (1 TABLET DAILY T INCREASE GRADUALLY TO 2G DAILY)
  2. PROLIA [Concomitant]
     Active Substance: DENOSUMAB
     Dosage: 60 MG/ML
  3. NOVORAPID [Suspect]
     Active Substance: INSULIN ASPART
     Indication: TYPE 2 DIABETES MELLITUS
     Dosage: 4 IU, BID (4 UNITS WITH BREAKFAST AND DINNER)
     Route: 065
  4. POTASSIUM CHLORIDE. [Concomitant]
     Active Substance: POTASSIUM CHLORIDE
     Dosage: 600 MG, BID(1 TABLET TWICE DAILY)
  5. RYZODEG 70/30 [Suspect]
     Active Substance: INSULIN ASPART\INSULIN DEGLUDEC
     Indication: TYPE 2 DIABETES MELLITUS
     Dosage: 22 IU, QD (22 UNITS BEFORE EVENING MEAL)
     Route: 065
  6. MAGNESIUM [Concomitant]
     Active Substance: MAGNESIUM

REACTIONS (3)
  - Diarrhoea [Recovered/Resolved]
  - Blood pressure increased [Unknown]
  - Obstructive pancreatitis [Unknown]

NARRATIVE: CASE EVENT DATE: 2019
